FAERS Safety Report 5097293-7 (Version None)
Quarter: 2006Q3

REPORT INFORMATION
  Report Type: 
  Country: None (occurrence: None)
  Receive Date: 20060901
  Receipt Date: 20060821
  Transmission Date: 20061208
  Serious: Yes (Death, Other)
  Sender: FDA-Public Use
  Company Number: 2005004215

PATIENT
  Age: 34 Year
  Sex: Female

DRUGS (5)
  1. NEURONTIN [Suspect]
     Indication: BIPOLAR DISORDER
     Dosage: 300 MG
     Dates: start: 20011211
  2. ZYPREXA [Suspect]
     Indication: ILL-DEFINED DISORDER
     Dates: start: 20011211
  3. ZOLOFT [Concomitant]
  4. SYNTHROID [Concomitant]
  5. THORAZINE [Concomitant]

REACTIONS (6)
  - BLOOD GLUCOSE DECREASED [None]
  - COMPLETED SUICIDE [None]
  - DRUG INEFFECTIVE [None]
  - DRUG TOXICITY [None]
  - FOAMING AT MOUTH [None]
  - MULTIPLE DRUG OVERDOSE INTENTIONAL [None]
